FAERS Safety Report 4589210-0 (Version None)
Quarter: 2005Q1

REPORT INFORMATION
  Report Type: 
  Country: None (occurrence: None)
  Receive Date: 20050215
  Receipt Date: 20050215
  Transmission Date: 20050727
  Serious: Yes (Death)
  Sender: FDA-Public Use
  Company Number: None

PATIENT
  Age: 17 Month
  Sex: Male
  Weight: 10.5 kg

DRUGS (3)
  1. SYNAGIS [Suspect]
     Indication: PROPHYLAXIS
     Dosage: 100 MG/50 MG A MONTH IM
     Route: 030
     Dates: start: 20050209
  2. SYNAGIS [Suspect]
     Indication: RESPIRATORY SYNCYTIAL VIRUS INFECTION
     Dosage: 100 MG/50 MG A MONTH IM
     Route: 030
     Dates: start: 20050209
  3. SYNAGIS [Suspect]

REACTIONS (1)
  - RESPIRATORY ARREST [None]
